FAERS Safety Report 18128336 (Version 1)
Quarter: 2020Q3

REPORT INFORMATION
  Report Type: Spontaneous
  Country: US (occurrence: US)
  Receive Date: 20200807
  Receipt Date: 20200807
  Transmission Date: 20201103
  Serious: Yes (Hospitalization)
  Sender: FDA-Public Use
  Company Number: None

PATIENT
  Age: 70 Year
  Sex: Male
  Weight: 103.7 kg

DRUGS (20)
  1. DEXAMETHASONE 6MG [Concomitant]
  2. HEPARIN [Concomitant]
     Active Substance: HEPARIN SODIUM
  3. CALITRIOL 0.25MCG [Concomitant]
  4. CEFTRIAXONE 2GM [Concomitant]
     Active Substance: CEFTRIAXONE
  5. ATORVASTATIN 40MG [Concomitant]
     Active Substance: ATORVASTATIN
  6. BUDESONIDE INHALATION [Concomitant]
     Active Substance: BUDESONIDE
  7. DOXAZOSIN [Concomitant]
     Active Substance: DOXAZOSIN MESYLATE
  8. ALBUTEROL HFA [Concomitant]
     Active Substance: ALBUTEROL SULFATE
  9. ALLOPURINOL 300MG [Concomitant]
     Active Substance: ALLOPURINOL
  10. DOXYCYCLINE 100MG [Concomitant]
     Active Substance: DOXYCYCLINE
  11. MONTELUKAST [Concomitant]
     Active Substance: MONTELUKAST SODIUM
  12. PANTOPRAZOLE 40MG [Concomitant]
     Active Substance: PANTOPRAZOLE SODIUM
  13. AZITHROMYCIN 500MG [Concomitant]
     Active Substance: AZITHROMYCIN
  14. ENOXAPARIN 40MG [Concomitant]
     Active Substance: ENOXAPARIN
  15. SODIUM BICARB TABLETS [Concomitant]
  16. REMDESIVIR. [Suspect]
     Active Substance: REMDESIVIR
     Indication: COVID-19
     Dosage: ?          OTHER FREQUENCY:ONCE;?
     Route: 041
  17. DUONEB [Concomitant]
     Active Substance: ALBUTEROL SULFATE\IPRATROPIUM BROMIDE
  18. REMDESIVIR. [Suspect]
     Active Substance: REMDESIVIR
     Indication: COVID-19
     Route: 041
  19. INSULIN LISPRO [Concomitant]
     Active Substance: INSULIN LISPRO
  20. POTASSIUM 20MEQ [Concomitant]

REACTIONS (1)
  - Hepatic function abnormal [None]

NARRATIVE: CASE EVENT DATE: 20200805
